FAERS Safety Report 21275086 (Version 2)
Quarter: 2022Q4

REPORT INFORMATION
  Report Type: Other
  Country: VN (occurrence: None)
  Receive Date: 20220831
  Receipt Date: 20221215
  Transmission Date: 20230112
  Serious: Yes (Other)
  Sender: FDA-Public Use
  Company Number: VN-ROCHE-3167312

PATIENT
  Age: 33 Year
  Sex: Male

DRUGS (1)
  1. ALECENSA [Suspect]
     Active Substance: ALECTINIB HYDROCHLORIDE
     Indication: Non-small cell lung cancer
     Route: 065

REACTIONS (4)
  - Metastases to lymph nodes [Unknown]
  - Lung neoplasm [Unknown]
  - Hepatitis B reactivation [Unknown]
  - Fatigue [Unknown]
